FAERS Safety Report 16983522 (Version 2)
Quarter: 2019Q4

REPORT INFORMATION
  Report Type: Spontaneous
  Country: US (occurrence: US)
  Receive Date: 20191101
  Receipt Date: 20191114
  Transmission Date: 20200122
  Serious: Yes (Hospitalization)
  Sender: FDA-Public Use
  Company Number: US-AMGEN-USASP2019175585

PATIENT
  Age: 73 Year
  Sex: Female
  Weight: 78.91 kg

DRUGS (2)
  1. PROLIA [Suspect]
     Active Substance: DENOSUMAB
     Indication: OSTEOPOROSIS POSTMENOPAUSAL
     Dosage: 60 MILLIGRAM
     Route: 065
     Dates: start: 201412
  2. PROLIA [Suspect]
     Active Substance: DENOSUMAB
     Dosage: UNK
     Route: 065
     Dates: start: 20170303

REACTIONS (16)
  - Glossodynia [Unknown]
  - Nerve compression [Unknown]
  - Arthralgia [Unknown]
  - Asthenia [Unknown]
  - Fall [Unknown]
  - Blood glucose abnormal [Unknown]
  - Carotid artery stenosis [Unknown]
  - Swelling [Unknown]
  - Blood magnesium decreased [Unknown]
  - Fatigue [Unknown]
  - Urinary tract infection [Unknown]
  - Myalgia [Unknown]
  - Contusion [Unknown]
  - Ageusia [Unknown]
  - Dysphagia [Unknown]
  - Pain [Unknown]

NARRATIVE: CASE EVENT DATE: 2018
